FAERS Safety Report 5787194-0 (Version None)
Quarter: 2008Q2

REPORT INFORMATION
  Report Type: 
  Country: None (occurrence: None)
  Receive Date: 20080625
  Receipt Date: 20070917
  Transmission Date: 20081010
  Serious: No
  Sender: FDA-Public Use
  Company Number: US-ASTRAZENECA-2007UW21853

PATIENT
  Age: 72 Year
  Sex: Male
  Weight: 120.7 kg

DRUGS (5)
  1. PULMICORT RESPULES [Suspect]
     Indication: EMPHYSEMA
     Dosage: 0.5 MG/DL
     Route: 055
     Dates: start: 20070816
  2. KLOR-CON [Concomitant]
  3. BUMETANIDE [Concomitant]
  4. DIOVAN [Concomitant]
  5. MIRATEX [Concomitant]

REACTIONS (1)
  - DYSPNOEA [None]
